FAERS Safety Report 18661375 (Version 5)
Quarter: 2021Q2

REPORT INFORMATION
  Report Type: Report from Study
  Country: None (occurrence: DE)
  Receive Date: 20201224
  Receipt Date: 20210522
  Transmission Date: 20210717
  Serious: Yes (Hospitalization, Other)
  Sender: FDA-Public Use
  Company Number: DE-ABBVIE-20K-062-3665955-00

PATIENT
  Age: 74 Year
  Sex: Female

DRUGS (23)
  1. RAMILICH [Concomitant]
     Active Substance: RAMIPRIL
     Indication: PRODUCT USED FOR UNKNOWN INDICATION
  2. MOVICOL [Concomitant]
     Active Substance: POLYETHYLENE GLYCOL 3350\POTASSIUM CHLORIDE\SODIUM BICARBONATE\SODIUM CHLORIDE
     Indication: PRODUCT USED FOR UNKNOWN INDICATION
     Dosage: COMBINATION PREP., SACHET, POWDER
  3. DUODOPA [Suspect]
     Active Substance: CARBIDOPA\LEVODOPA
     Dosage: MD 5ML FR, 2.1MG/HRS, ED 2ML 16HR
     Route: 050
     Dates: start: 2020
  4. MADOPAR LT [Concomitant]
     Active Substance: BENSERAZIDE HYDROCHLORIDE\LEVODOPA
     Indication: PRODUCT USED FOR UNKNOWN INDICATION
     Dosage: EMERGENCY MEDICATION IN CASE OF FAILURE?1?0?0?0 AS REQUIRED, 5X1 PER DAY AT AKINESIA
  5. THYRONAJOD [Concomitant]
     Active Substance: LEVOTHYROXINE SODIUM\POTASSIUM IODIDE
     Indication: PRODUCT USED FOR UNKNOWN INDICATION
     Dosage: 0.073 MG 0.15 MG
  6. PANTOPRAZOL [Concomitant]
     Active Substance: PANTOPRAZOLE SODIUM
     Indication: PRODUCT USED FOR UNKNOWN INDICATION
     Dosage: 40 MG GASTRIC ACID RESISTANCE
  7. LEVOCOMP RETARD [Concomitant]
     Active Substance: CARBIDOPA\LEVODOPA
     Indication: PRODUCT USED FOR UNKNOWN INDICATION
     Dosage: 53.98MG CARBIDOPA?1?WATER ?0?0?0?0?1 AT 22 PM
  8. HYGROTON [Concomitant]
     Active Substance: CHLORTHALIDONE
     Indication: PRODUCT USED FOR UNKNOWN INDICATION
  9. SYMBICORT [Concomitant]
     Active Substance: BUDESONIDE\FORMOTEROL FUMARATE DIHYDRATE
     Indication: PRODUCT USED FOR UNKNOWN INDICATION
     Dosage: 160 UG/4.5 UG / DOSAGE 60 , 4.91 UG/200UG
  10. RAMIPRIL HEXAL [Concomitant]
     Active Substance: RAMIPRIL
     Indication: PRODUCT USED FOR UNKNOWN INDICATION
     Dosage: 5MG RAMIPRIL
  11. NOVAMINSULFON LICHTENSTEIN [Concomitant]
     Active Substance: METAMIZOLE SODIUM
     Indication: PRODUCT USED FOR UNKNOWN INDICATION
     Dosage: TROPICAL 500MG/1ML
  12. DUODOPA [Suspect]
     Active Substance: CARBIDOPA\LEVODOPA
     Indication: PARKINSON^S DISEASE
     Dosage: MD 9 ML CRD 2.6 ML/H ED 2 ML
     Route: 050
     Dates: start: 20200924, end: 202009
  13. DUODOPA [Suspect]
     Active Substance: CARBIDOPA\LEVODOPA
     Dosage: MD 9 ML CRD 2.6 ML/H ED 2 ML 20/5MG 16HR
     Route: 050
     Dates: start: 20200926, end: 2020
  14. METOHEXAL [Concomitant]
     Active Substance: METOPROLOL
     Indication: PRODUCT USED FOR UNKNOWN INDICATION
  15. METOHEXAL [Concomitant]
     Active Substance: METOPROLOL
  16. ASS HEXAL [Concomitant]
     Active Substance: ASPIRIN
     Indication: PRODUCT USED FOR UNKNOWN INDICATION
  17. ATORVASTATIN STADA [Concomitant]
     Active Substance: ATORVASTATIN
     Indication: PRODUCT USED FOR UNKNOWN INDICATION
     Dosage: 2 AT 19 PM, 43.3 MG
  18. DUODOPA [Suspect]
     Active Substance: CARBIDOPA\LEVODOPA
     Dosage: MD 9 ML CRD 3.3 ML/H ED 1 ML
     Route: 050
  19. ASPIRIN. [Concomitant]
     Active Substance: ASPIRIN
     Indication: PRODUCT USED FOR UNKNOWN INDICATION
     Dosage: TAD PROTECT
  20. ATORVASTATIN ACCORD [Concomitant]
     Active Substance: ATORVASTATIN
     Indication: PRODUCT USED FOR UNKNOWN INDICATION
  21. CALCIUM DURA [Concomitant]
     Indication: PRODUCT USED FOR UNKNOWN INDICATION
     Dosage: 600MG/400IU 1500MG
  22. DUODOPA [Suspect]
     Active Substance: CARBIDOPA\LEVODOPA
     Dosage: MD 9 ML CRD 2.2 ML/H ED 1 ML
     Route: 050
  23. THYRONAJOD [Concomitant]
     Active Substance: LEVOTHYROXINE SODIUM\POTASSIUM IODIDE
     Dosage: 0.075 MG LEVOTHYROXINE NA, 0.073 MG LEVOTHYROXIN 0.196 KI, 0.15MG IODINE ION

REACTIONS (13)
  - Inflammatory marker increased [Unknown]
  - Vomiting [Recovering/Resolving]
  - Constipation [Unknown]
  - Laboratory test abnormal [Unknown]
  - Ventricular fibrillation [Recovering/Resolving]
  - Blood creatinine increased [Unknown]
  - Stoma site inflammation [Recovering/Resolving]
  - Neutrophil count increased [Unknown]
  - Enterococcal infection [Unknown]
  - Stoma site discharge [Recovering/Resolving]
  - Device leakage [Unknown]
  - Stoma site haemorrhage [Recovering/Resolving]
  - Klebsiella infection [Unknown]

NARRATIVE: CASE EVENT DATE: 2020
